FAERS Safety Report 12000759 (Version 2)
Quarter: 2016Q2

REPORT INFORMATION
  Report Type: Spontaneous
  Country: US (occurrence: US)
  Receive Date: 20160204
  Receipt Date: 20160428
  Transmission Date: 20160815
  Serious: Yes (Other)
  Sender: FDA-Public Use
  Company Number: US-PFIZER INC-2016055243

PATIENT
  Age: 39 Year
  Sex: Female
  Weight: 58 kg

DRUGS (6)
  1. ONE-A-DAY WOMEN^S [Concomitant]
     Active Substance: VITAMINS
     Indication: VITAMIN SUPPLEMENTATION
     Dosage: UNK, 1X/DAY
     Dates: end: 20160330
  2. COCONUT OIL [Concomitant]
     Active Substance: COCONUT OIL
     Indication: TYPE 1 DIABETES MELLITUS
     Dosage: ONE TEASPOON, 4X/DAY
  3. FISH OIL [Concomitant]
     Active Substance: FISH OIL
     Indication: SUPPLEMENTATION THERAPY
     Dosage: 1100 MG, 1X/DAY
  4. LYRICA [Suspect]
     Active Substance: PREGABALIN
     Indication: TEMPORAL LOBE EPILEPSY
     Dosage: 200 MG, 2X/DAY
  5. TURMERIC [Concomitant]
     Active Substance: TURMERIC
     Indication: SEIZURE
     Dosage: 1350 MG, DAILY
     Dates: start: 201601, end: 201602
  6. LYRICA [Suspect]
     Active Substance: PREGABALIN
     Indication: SEIZURE
     Dosage: 75 MG, 3X/DAY

REACTIONS (3)
  - Drug ineffective [Unknown]
  - Drug administration error [Not Recovered/Not Resolved]
  - Amnesia [Unknown]
